FAERS Safety Report 4695898-6 (Version None)
Quarter: 2005Q2

REPORT INFORMATION
  Report Type: 
  Country: None (occurrence: None)
  Receive Date: 20050621
  Receipt Date: 20050609
  Transmission Date: 20051028
  Serious: Yes (Other)
  Sender: FDA-Public Use
  Company Number: US-GLAXOSMITHKLINE-A0561976A

PATIENT
  Age: 22 Year
  Sex: Female

DRUGS (2)
  1. NICODERM CQ [Suspect]
     Dates: start: 20050602, end: 20050608
  2. BIRTH CONTROL [Concomitant]

REACTIONS (2)
  - INTENTIONAL MISUSE [None]
  - VAGINAL HAEMORRHAGE [None]
